FAERS Safety Report 21923967 (Version 5)
Quarter: 2023Q1

REPORT INFORMATION
  Report Type: Report from Study
  Country: CA (occurrence: CA)
  Receive Date: 20230130
  Receipt Date: 20230313
  Transmission Date: 20230417
  Serious: Yes (Hospitalization, Other)
  Sender: FDA-Public Use
  Company Number: CA-ABBVIE-4286062

PATIENT
  Age: 64 Year
  Sex: Male

DRUGS (2)
  1. RINVOQ [Suspect]
     Active Substance: UPADACITINIB
     Indication: Crohn^s disease
     Dosage: FREQUENCY TEXT: 45MG/DAY FOR 12 WEEKS, THEN 30MG/DAY
     Route: 048
     Dates: start: 20230113, end: 20230125
  2. RINVOQ [Suspect]
     Active Substance: UPADACITINIB
     Indication: Crohn^s disease
     Dosage: FREQUENCY TEXT: 45MG/DAY FOR 12 WEEKS, THEN 30MG/DAY
     Route: 048
     Dates: start: 202301, end: 202302

REACTIONS (15)
  - Intestinal haemorrhage [Recovering/Resolving]
  - Asthenia [Unknown]
  - Pain in extremity [Unknown]
  - Arthralgia [Unknown]
  - Hypoaesthesia [Unknown]
  - Pain [Unknown]
  - Skin fragility [Unknown]
  - Off label use [Unknown]
  - Insomnia [Unknown]
  - Haematochezia [Recovered/Resolved]
  - Haemoglobin decreased [Recovering/Resolving]
  - Pain [Unknown]
  - Dysstasia [Unknown]
  - Fatigue [Unknown]
  - Blood urine present [Unknown]

NARRATIVE: CASE EVENT DATE: 20230101
